FAERS Safety Report 6168742-8 (Version None)
Quarter: 2009Q2

REPORT INFORMATION
  Report Type: 
  Country: None (occurrence: None)
  Receive Date: 20090427
  Receipt Date: 20090422
  Transmission Date: 20091009
  Serious: Yes (Hospitalization)
  Sender: FDA-Public Use
  Company Number: FR-MERCK-0904FRA00054

PATIENT
  Age: 42 Year
  Sex: Female

DRUGS (6)
  1. ISENTRESS [Suspect]
     Indication: HIV INFECTION
     Route: 048
     Dates: start: 20070725
  2. RITONAVIR [Concomitant]
     Indication: HIV INFECTION
     Route: 048
     Dates: start: 20070725
  3. DARUNAVIR [Concomitant]
     Indication: HIV INFECTION
     Route: 048
     Dates: start: 20070725
  4. MARAVIROC [Concomitant]
     Indication: HIV INFECTION
     Route: 048
     Dates: start: 20070725
  5. FENTANYL [Concomitant]
     Route: 061
  6. ACEPROMETAZINE MALEATE AND MEPROBAMATE [Concomitant]
     Route: 048

REACTIONS (3)
  - GALLBLADDER CANCER [None]
  - LACTIC ACIDOSIS [None]
  - METASTASES TO LIVER [None]
